FAERS Safety Report 8602561-5 (Version None)
Quarter: 2012Q3

REPORT INFORMATION
  Report Type: 
  Country: None (occurrence: None)
  Receive Date: 20120817
  Receipt Date: 20120730
  Transmission Date: 20120928
  Serious: Yes (Hospitalization)
  Sender: FDA-Public Use
  Company Number: US-INCYTE CORPORATION-2012IN001159

PATIENT
  Sex: Female
  Weight: 75.737 kg

DRUGS (2)
  1. HYDREA [Concomitant]
     Dosage: 1000 MG, QD
     Dates: start: 20111222, end: 20120320
  2. JAKAFI [Suspect]
     Indication: MYELOFIBROSIS
     Dosage: 15 MG, BID
     Route: 048
     Dates: start: 20120526, end: 20120611

REACTIONS (5)
  - HAEMATOMA [None]
  - ANAEMIA [None]
  - CHRONIC MYELOMONOCYTIC LEUKAEMIA [None]
  - HYPOTENSION [None]
  - HYPOVOLAEMIA [None]
